FAERS Safety Report 4338145-7 (Version None)
Quarter: 2004Q2

REPORT INFORMATION
  Report Type: 
  Country: None (occurrence: None)
  Receive Date: 20040407
  Receipt Date: 20040330
  Transmission Date: 20050107
  Serious: Yes (Other)
  Sender: FDA-Public Use
  Company Number: 2004206090PL

PATIENT
  Sex: Female
  Weight: 5.1 kg

DRUGS (1)
  1. DEPO-PROVERA [Suspect]
     Indication: CONTRACEPTION
     Dosage: 150 MG/3 MONTHS, 1ST INJ; INTRAMUSCULAR
     Route: 030
     Dates: start: 20030901, end: 20030901

REACTIONS (4)
  - CYTOMEGALOVIRUS ANTIBODY POSITIVE [None]
  - DRUG EXPOSURE VIA BREAST MILK [None]
  - HAEMOLYTIC ANAEMIA [None]
  - HEPATOCELLULAR DAMAGE [None]
